FAERS Safety Report 19353966 (Version 2)
Quarter: 2021Q2

REPORT INFORMATION
  Report Type: Spontaneous
  Country: HU (occurrence: HU)
  Receive Date: 20210531
  Receipt Date: 20210609
  Transmission Date: 20210717
  Serious: Yes (Other)
  Sender: FDA-Public Use
  Company Number: NVSC2021HU117363

PATIENT
  Age: 46 Year
  Sex: Female

DRUGS (10)
  1. RIVOTRIL [Suspect]
     Active Substance: CLONAZEPAM
     Dosage: 2 MG,QD (IN THE EVENING)
     Route: 065
     Dates: start: 20200721
  2. TRITTICO [Concomitant]
     Active Substance: TRAZODONE HYDROCHLORIDE
     Indication: PRODUCT USED FOR UNKNOWN INDICATION
     Dosage: UNK (ONE IN THE EVENING)
     Route: 065
     Dates: start: 20200512
  3. RIVOTRIL [Suspect]
     Active Substance: CLONAZEPAM
     Dosage: 0.5 MG
     Route: 065
     Dates: start: 20191107
  4. CITALOPRAM [Concomitant]
     Active Substance: CITALOPRAM HYDROBROMIDE
     Dosage: 40 MG
     Route: 065
     Dates: start: 20200512, end: 202011
  5. TEGRETOL [Suspect]
     Active Substance: CARBAMAZEPINE
     Indication: PRODUCT USED FOR UNKNOWN INDICATION
     Dosage: 200 MG, QD
     Route: 065
  6. RIVOTRIL [Suspect]
     Active Substance: CLONAZEPAM
     Indication: ANXIETY
     Dosage: UNK
     Route: 065
  7. CITALOPRAM [Concomitant]
     Active Substance: CITALOPRAM HYDROBROMIDE
     Indication: ADJUSTMENT DISORDER
     Route: 065
  8. RIVOTRIL [Suspect]
     Active Substance: CLONAZEPAM
     Dosage: 0.5 MG
     Route: 065
     Dates: start: 20200825
  9. TEGRETOL [Suspect]
     Active Substance: CARBAMAZEPINE
     Dosage: 200 MG, QD (1 IN THE EVENING)
     Route: 065
     Dates: start: 20210428
  10. RIVOTRIL [Suspect]
     Active Substance: CLONAZEPAM
     Dosage: 2 MG
     Route: 065
     Dates: start: 20200227

REACTIONS (3)
  - Epilepsy [Recovered/Resolved]
  - Negative symptoms in schizophrenia [Not Recovered/Not Resolved]
  - Therapeutic product effect decreased [Unknown]
